FAERS Safety Report 5676463-0 (Version None)
Quarter: 2008Q2

REPORT INFORMATION
  Report Type: 
  Country: None (occurrence: None)
  Receive Date: 20080310
  Receipt Date: 20080110
  Transmission Date: 20081010
  Serious: Yes (Other)
  Sender: FDA-Public Use
  Company Number: 08-021

PATIENT
  Sex: Female
  Weight: 56.6996 kg

DRUGS (1)
  1. ALEVE [Suspect]
     Indication: BACK PAIN
     Dosage: 220 MG, DAILY, ORAL
     Route: 048
     Dates: start: 20071207, end: 20071207

REACTIONS (3)
  - CHOKING [None]
  - FOREIGN BODY TRAUMA [None]
  - PHARYNGOLARYNGEAL PAIN [None]
